FAERS Safety Report 17921817 (Version 2)
Quarter: 2025Q3

REPORT INFORMATION
  Report Type: Spontaneous
  Country: EU (occurrence: EU)
  Receive Date: 20200622
  Receipt Date: 20250923
  Transmission Date: 20251020
  Serious: Yes (Other)
  Sender: ROCHE
  Company Number: EU-NOVPHSZ-PHHY2019FR212115

PATIENT
  Age: 84 Year
  Sex: Male

DRUGS (3)
  1. RITUXIMAB [Suspect]
     Active Substance: RITUXIMAB
     Indication: Immune thrombocytopenia
     Dosage: 375 MG/M2, Q4W?ONE COURSE OF THERAPY
     Route: 042
  2. MYCOPHENOLATE MOFETIL [Suspect]
     Active Substance: MYCOPHENOLATE MOFETIL
     Indication: Immune thrombocytopenia
     Route: 065
  3. VINBLASTINE [Suspect]
     Active Substance: VINBLASTINE
     Indication: Immune thrombocytopenia
     Route: 065

REACTIONS (5)
  - Bronchitis [Recovered/Resolved]
  - Pneumocystis jirovecii infection [Recovered/Resolved]
  - Postoperative wound infection [Recovered/Resolved]
  - Lung disorder [Recovered/Resolved]
  - Off label use [Unknown]
